FAERS Safety Report 4961338-2 (Version None)
Quarter: 2006Q2

REPORT INFORMATION
  Report Type: 
  Country: None (occurrence: None)
  Receive Date: 20060403
  Receipt Date: 20051205
  Transmission Date: 20061013
  Serious: Yes (Hospitalization)
  Sender: FDA-Public Use
  Company Number: US-MERCK-0512USA00634

PATIENT
  Age: 56 Year
  Sex: Male
  Weight: 100 kg

DRUGS (7)
  1. VIOXX [Suspect]
     Indication: ARTHRITIS
     Route: 048
     Dates: start: 20010102, end: 20040101
  2. METOPROLOL [Concomitant]
     Indication: HYPERTENSION
     Route: 065
     Dates: start: 19900101
  3. ADVIL [Concomitant]
     Indication: PAIN
     Route: 065
  4. MOTRIN [Concomitant]
     Indication: PAIN
     Route: 065
  5. NAPROXEN [Concomitant]
     Indication: PAIN
     Route: 065
  6. ALEVE [Concomitant]
     Indication: PAIN
     Route: 065
  7. TYLENOL (CAPLET) [Concomitant]
     Indication: PAIN
     Route: 065

REACTIONS (7)
  - ATTENTION DEFICIT/HYPERACTIVITY DISORDER [None]
  - EXOSTOSIS [None]
  - HIGH DENSITY LIPOPROTEIN DECREASED [None]
  - JOINT INJURY [None]
  - LIMB INJURY [None]
  - MYOCARDIAL INFARCTION [None]
  - RECTAL HAEMORRHAGE [None]
